FAERS Safety Report 4517221-X (Version None)
Quarter: 2004Q4

REPORT INFORMATION
  Report Type: 
  Country: None (occurrence: None)
  Receive Date: 20041202
  Receipt Date: 20041109
  Transmission Date: 20050328
  Serious: Yes (Life-Threatening, Hospitalization, Disabling, Other)
  Sender: FDA-Public Use
  Company Number: US-MERCK-0411USA01728

PATIENT
  Sex: Male

DRUGS (7)
  1. VIOXX [Suspect]
     Route: 048
     Dates: start: 20030101, end: 20040803
  2. LOPRESSOR [Concomitant]
     Route: 065
  3. COUMADIN [Concomitant]
     Route: 065
  4. VITAMINS (UNSPECIFIED) [Concomitant]
     Route: 065
  5. AMIODARONE [Concomitant]
     Route: 065
  6. NIASPAN [Concomitant]
     Route: 065
  7. ZOCOR [Concomitant]
     Route: 065

REACTIONS (3)
  - CARDIAC VALVE DISEASE [None]
  - CORONARY ARTERY DISEASE [None]
  - MYOCARDIAL INFARCTION [None]
